FAERS Safety Report 14715723 (Version 2)
Quarter: 2018Q2

REPORT INFORMATION
  Report Type: Spontaneous
  Country: DE (occurrence: DE)
  Receive Date: 20180404
  Receipt Date: 20180420
  Transmission Date: 20180711
  Serious: Yes (Other)
  Sender: FDA-Public Use
  Company Number: DE-ACTELION-A-US2018-170168

PATIENT

DRUGS (13)
  1. OPSUMIT [Suspect]
     Active Substance: MACITENTAN
     Dosage: 10 MG, QD
     Route: 048
  2. LASIX [Concomitant]
     Active Substance: FUROSEMIDE
  3. XIPAMIDE [Concomitant]
     Active Substance: XIPAMIDE
  4. OXYGEN. [Concomitant]
     Active Substance: OXYGEN
  5. PREGABALIN. [Concomitant]
     Active Substance: PREGABALIN
  6. MARCOUMAR [Concomitant]
     Active Substance: PHENPROCOUMON
  7. BLEOMYCIN [Concomitant]
     Active Substance: BLEOMYCIN SULFATE
  8. VENTAVIS [Suspect]
     Active Substance: ILOPROST
     Indication: PRODUCT USED FOR UNKNOWN INDICATION
     Dosage: 6 PUFF, QD
     Route: 055
     Dates: start: 201602, end: 20180319
  9. VENTAVIS [Suspect]
     Active Substance: ILOPROST
     Dosage: 6 PUFF, QD
     Route: 055
     Dates: start: 2017
  10. TORASEMIDE [Concomitant]
     Active Substance: TORSEMIDE
  11. REVATIO [Concomitant]
     Active Substance: SILDENAFIL CITRATE
  12. OPSUMIT [Suspect]
     Active Substance: MACITENTAN
     Indication: PRODUCT USED FOR UNKNOWN INDICATION
     Dosage: UNK
     Route: 048
     Dates: start: 20150901, end: 201712
  13. CLEXANE [Concomitant]
     Active Substance: ENOXAPARIN SODIUM

REACTIONS (9)
  - Renal failure [Unknown]
  - Left ventricular failure [Unknown]
  - Drug ineffective [Unknown]
  - Asthenia [Unknown]
  - Renal impairment [Unknown]
  - Renal disorder [Unknown]
  - Syncope [Unknown]
  - General physical health deterioration [Unknown]
  - Oedema [Unknown]

NARRATIVE: CASE EVENT DATE: 2016
